FAERS Safety Report 15323927 (Version 1)
Quarter: 2018Q3

REPORT INFORMATION
  Report Type: Report from Study
  Country: US (occurrence: US)
  Receive Date: 20180828
  Receipt Date: 20180828
  Transmission Date: 20181010
  Serious: Yes (Other)
  Sender: FDA-Public Use
  Company Number: US-ROCHE-2172908

PATIENT
  Sex: Female

DRUGS (1)
  1. OCREVUS [Suspect]
     Active Substance: OCRELIZUMAB
     Indication: MULTIPLE SCLEROSIS
     Dosage: LAST DOSE ON: 04/DEC/2017?300 MG ONCE IN TWO WEEKS AND THEN 600 MG EVERY SIX MONTHS.
     Route: 065
     Dates: start: 20171120

REACTIONS (3)
  - Cystitis [Unknown]
  - Bronchitis [Unknown]
  - Nasopharyngitis [Unknown]
